FAERS Safety Report 8868165 (Version 2)
Quarter: 2015Q2

REPORT INFORMATION
  Report Type: Report from Study
  Country: US (occurrence: US)
  Receive Date: 20121025
  Receipt Date: 20150410
  Transmission Date: 20150821
  Serious: No
  Sender: FDA-Public Use
  Company Number: US-AMGEN-USASP2012019163

PATIENT
  Age: 44 Year
  Sex: Female

DRUGS (1)
  1. ENBREL [Suspect]
     Active Substance: ETANERCEPT
     Indication: RHEUMATOID ARTHRITIS
     Dosage: 50 MG, QWK
     Route: 058
     Dates: start: 20090715, end: 20120313

REACTIONS (9)
  - Arthralgia [Not Recovered/Not Resolved]
  - Pruritus [Unknown]
  - Infection [Not Recovered/Not Resolved]
  - Injection site reaction [Unknown]
  - Oropharyngeal pain [Not Recovered/Not Resolved]
  - Erythema [Unknown]
  - Pharyngitis [Unknown]
  - Sinusitis [Unknown]
  - Headache [Unknown]

NARRATIVE: CASE EVENT DATE: 20120319
